FAERS Safety Report 10237479 (Version 1)
Quarter: 2014Q2

REPORT INFORMATION
  Report Type: Spontaneous
  Country: MY (occurrence: MY)
  Receive Date: 20140615
  Receipt Date: 20140615
  Transmission Date: 20141212
  Serious: Yes (Other)
  Sender: FDA-Public Use
  Company Number: MY-ABBVIE-14P-101-1247040-00

PATIENT
  Age: 35 Year
  Sex: Female

DRUGS (1)
  1. HUMIRA [Suspect]
     Indication: PRODUCT USED FOR UNKNOWN INDICATION

REACTIONS (5)
  - Frequent bowel movements [Unknown]
  - Drug ineffective [Unknown]
  - Condition aggravated [Unknown]
  - Haematochezia [Unknown]
  - Bowel movement irregularity [Unknown]
